FAERS Safety Report 19085069 (Version 1)
Quarter: 2021Q2

REPORT INFORMATION
  Report Type: Spontaneous
  Country: DE (occurrence: DE)
  Receive Date: 20210401
  Receipt Date: 20210401
  Transmission Date: 20210717
  Serious: Yes (Hospitalization, Other)
  Sender: FDA-Public Use
  Company Number: DE-ORGANON-O2103DEU003128

PATIENT
  Age: 27 Year
  Sex: Female

DRUGS (8)
  1. PROGESTERONE. [Suspect]
     Active Substance: PROGESTERONE
     Indication: ASSISTED REPRODUCTIVE TECHNOLOGY
     Dosage: 2 DOSAGE FORM, QD, 2X1, UTROGEST LUTEAL
     Route: 067
  2. ESTRIFAM [ESTRADIOL;ESTRIOL] [Suspect]
     Active Substance: ESTRADIOL\ESTRIOL
     Indication: ASSISTED REPRODUCTIVE TECHNOLOGY
     Dosage: 2 DOSAGE FORM, QD, 2X1
     Route: 067
  3. PROGESTERONE. [Suspect]
     Active Substance: PROGESTERONE
     Indication: ASSISTED REPRODUCTIVE TECHNOLOGY
     Dosage: 9 DOSAGE FORM, QD, 3X3, PROGESTAN
     Route: 067
  4. TRIPTOFEM [Suspect]
     Active Substance: TRIPTORELIN ACETATE
     Indication: OVULATION INDUCTION
  5. ORGALUTRAN [Suspect]
     Active Substance: GANIRELIX ACETATE
     Indication: ASSISTED REPRODUCTIVE TECHNOLOGY
     Dosage: DOWNREGULATION
  6. GONADOTROPIN, CHORIONIC [Suspect]
     Active Substance: CHORIOGONADOTROPIN ALFA
     Indication: ASSISTED REPRODUCTIVE TECHNOLOGY
     Dosage: 500 INTERNATIONAL UNIT (500 IU ON THE DAY OF THE PUNCTURE AND 500 IU ON THE DAY OF TRANSFER); HCG
  7. BEMFOLA [Suspect]
     Active Substance: FOLLITROPIN ALFA
     Indication: ASSISTED REPRODUCTIVE TECHNOLOGY
     Dosage: 150 INTERNATIONAL UNIT, QD (150 IU / DAY)
  8. TRIPTOFEM [Suspect]
     Active Substance: TRIPTORELIN ACETATE
     Indication: ASSISTED REPRODUCTIVE TECHNOLOGY
     Dosage: 1 DOSAGE FORM, TOTAL, CONCENTRATION: 0.1 MG/ML, 1 AMP., SOLUTION FOR INJECTION IN A PRE?FILLED SYRIN
     Route: 058
     Dates: start: 20210228

REACTIONS (2)
  - Ovarian hyperstimulation syndrome [Recovered/Resolved]
  - Adverse reaction [Recovered/Resolved]

NARRATIVE: CASE EVENT DATE: 20210301
